FAERS Safety Report 9049033 (Version 1)
Quarter: 2013Q1

REPORT INFORMATION
  Report Type: Spontaneous
  Country: US (occurrence: None)
  Receive Date: 20130129
  Receipt Date: 20130129
  Transmission Date: 20140127
  Serious: Yes (Other)
  Sender: FDA-Public Use
  Company Number: None

PATIENT
  Age: 31 Year
  Sex: Female
  Weight: 68.49 kg

DRUGS (2)
  1. ESCITALOPRAM 10 MG [Suspect]
     Indication: DEPRESSION
     Dosage: 10 MG  ORALLY  DAILY?APROX  3/20/12
     Route: 048
     Dates: end: 20120320
  2. ESCITALOPRAM 10 MG [Suspect]
     Indication: ANXIETY
     Dosage: 10 MG  ORALLY  DAILY?APROX  3/20/12
     Route: 048
     Dates: end: 20120320

REACTIONS (1)
  - Rash pruritic [None]
